FAERS Safety Report 9879865 (Version 2)
Quarter: 2014Q1

REPORT INFORMATION
  Report Type: Spontaneous
  Country: US (occurrence: US)
  Receive Date: 20140206
  Receipt Date: 20140207
  Transmission Date: 20141002
  Serious: Yes (Other)
  Sender: FDA-Public Use
  Company Number: US-JNJFOC-20140202329

PATIENT
  Age: 66 Year
  Sex: Female
  Weight: 87.98 kg

DRUGS (2)
  1. COUMADIN [Concomitant]
     Indication: ANTICOAGULANT THERAPY
     Route: 065
  2. NICOTROL INHALER [Suspect]
     Indication: SMOKING CESSATION THERAPY
     Route: 065
     Dates: start: 2000, end: 2006

REACTIONS (1)
  - Cardiac pacemaker insertion [Unknown]
